FAERS Safety Report 4880675-3 (Version None)
Quarter: 2006Q1

REPORT INFORMATION
  Report Type: 
  Country: None (occurrence: None)
  Receive Date: 20060113
  Receipt Date: 20050418
  Transmission Date: 20060701
  Serious: Yes (Hospitalization, Disabling)
  Sender: FDA-Public Use
  Company Number: US-MERCK-0504USA03488

PATIENT
  Age: 59 Year
  Sex: Female
  Weight: 80 kg

DRUGS (12)
  1. VIOXX [Suspect]
     Indication: ARTHRITIS
     Route: 048
     Dates: start: 19991001, end: 20020417
  2. LABETALOL HYDROCHLORIDE [Concomitant]
     Route: 065
  3. AVALIDE [Concomitant]
     Route: 065
  4. K-DUR 10 [Concomitant]
     Route: 065
  5. PRILOSEC [Concomitant]
     Route: 048
  6. ESTRADIOL [Concomitant]
     Route: 065
  7. PROPULSID [Concomitant]
     Route: 065
  8. HYZAAR [Concomitant]
     Route: 048
  9. CARDURA [Concomitant]
     Route: 065
  10. ACETAMINOPHEN AND PROPOXYPHENE NAPSYLATE [Concomitant]
     Route: 065
  11. TOPROL-XL [Concomitant]
     Route: 065
  12. KLOR-CON [Concomitant]
     Route: 065

REACTIONS (2)
  - CEREBROVASCULAR ACCIDENT [None]
  - EMOTIONAL DISTRESS [None]
